FAERS Safety Report 8521456-9 (Version None)
Quarter: 2012Q3

REPORT INFORMATION
  Report Type: 
  Country: None (occurrence: None)
  Receive Date: 20120719
  Receipt Date: 20120711
  Transmission Date: 20120928
  Serious: Yes (Death)
  Sender: FDA-Public Use
  Company Number: GB-TEVA-347674ISR

PATIENT
  Age: 79 Year
  Sex: Female
  Weight: 55.45 kg

DRUGS (27)
  1. ADENOSINE [Concomitant]
  2. ACETAMINOPHEN AND CODEINE PHOSPHATE [Concomitant]
  3. OMEPRAZOLE [Concomitant]
  4. ACETAMINOPHEN [Concomitant]
  5. CLARITHROMYCIN [Suspect]
     Indication: PNEUMONIA
     Route: 048
     Dates: start: 20120512, end: 20120521
  6. SPIRONOLACTONE [Suspect]
  7. DALTEPARIN SODIUM [Concomitant]
  8. TEICOPLANIN [Concomitant]
     Indication: PNEUMONIA
  9. ADCAL-D3 [Concomitant]
  10. FUROSEMIDE [Concomitant]
  11. AMIODARONE HCL [Concomitant]
     Dosage: STOPPED AS RISK OF LUNG FIBROSIS.
  12. FOLIC ACID [Concomitant]
  13. TRAMADOL HYDROCHLORIDE [Concomitant]
  14. WARFARIN SODIUM [Concomitant]
     Indication: PULMONARY EMBOLISM
  15. GENTAMICIN [Concomitant]
  16. AMOXICILLIN AND CLAVULANATE POTASSIUM [Concomitant]
  17. BISOPROLOL FUMARATE [Concomitant]
     Dosage: INCREASED TO 5MG ONCE DAILY.
  18. CLOTRIMAZOLE [Concomitant]
  19. METOCLOPRAMIDE [Concomitant]
  20. SIMVASTATIN [Suspect]
  21. BUMETANIDE [Suspect]
  22. DIORALYTE [Concomitant]
  23. DICLOFENAC DIETHYLAMMONIUM  SALT [Concomitant]
  24. CANDESARTAN [Concomitant]
  25. HEPARIN [Concomitant]
     Indication: PULMONARY EMBOLISM
  26. FORTISIP [Concomitant]
  27. METHOTREXATE [Concomitant]
     Dosage: STOPPED ON ADMISSION. PULMONARY FIBROSIS SECONDARY TO METHOTREXATE AND FLUID OVERLOAD.

REACTIONS (22)
  - FLUID OVERLOAD [None]
  - RASH MACULO-PAPULAR [None]
  - BLISTER [None]
  - STEVENS-JOHNSON SYNDROME [None]
  - RASH PRURITIC [None]
  - EXFOLIATIVE RASH [None]
  - DRY SKIN [None]
  - RASH GENERALISED [None]
  - PRURITUS [None]
  - TOXIC EPIDERMAL NECROLYSIS [None]
  - BLOOD CREATININE INCREASED [None]
  - OEDEMA PERIPHERAL [None]
  - HYPERSENSITIVITY [None]
  - SCAB [None]
  - ATRIAL FIBRILLATION [None]
  - HAEMOGLOBIN DECREASED [None]
  - ERYTHEMA [None]
  - SWELLING [None]
  - PETECHIAE [None]
  - ECZEMA [None]
  - PAIN [None]
  - RENAL FAILURE ACUTE [None]
